FAERS Safety Report 7646708-6 (Version None)
Quarter: 2011Q3

REPORT INFORMATION
  Report Type: 
  Country: None (occurrence: None)
  Receive Date: 20110801
  Receipt Date: 20110725
  Transmission Date: 20111222
  Serious: Yes (Other)
  Sender: FDA-Public Use
  Company Number: US-BAYER-2011-040765

PATIENT
  Age: 39 Year
  Sex: Female
  Weight: 58.503 kg

DRUGS (5)
  1. MIRENA [Suspect]
     Indication: DYSMENORRHOEA
  2. NEURONTIN [Concomitant]
     Indication: NEURALGIA
     Dosage: 900 MG, TID
     Route: 048
  3. MIRENA [Suspect]
     Indication: CONTRACEPTION
     Dosage: 20 MCG/24HR, CONT
     Route: 015
     Dates: start: 20110407, end: 20110425
  4. NAPROXEN [Concomitant]
     Dosage: 500 MG, BID
     Route: 048
  5. CYMBALTA [Concomitant]
     Indication: DEPRESSION
     Dosage: 30 MG, BID
     Route: 048
     Dates: start: 20110401

REACTIONS (13)
  - DIZZINESS [None]
  - ABDOMINAL PAIN [None]
  - DEPRESSED MOOD [None]
  - FATIGUE [None]
  - PROCEDURAL PAIN [None]
  - VULVOVAGINAL DISCOMFORT [None]
  - MENORRHAGIA [None]
  - HEADACHE [None]
  - VAGINAL HAEMORRHAGE [None]
  - ASTHENIA [None]
  - PELVIC PAIN [None]
  - PRURITUS [None]
  - URTICARIA [None]
